FAERS Safety Report 4511872-4 (Version None)
Quarter: 2004Q4

REPORT INFORMATION
  Report Type: 
  Country: None (occurrence: None)
  Receive Date: 20041123
  Receipt Date: 20041115
  Transmission Date: 20050328
  Serious: Yes (Death)
  Sender: FDA-Public Use
  Company Number: USA-2004-0017697

PATIENT
  Age: 54 Year
  Sex: Female

DRUGS (2)
  1. SPECTRACEF [Suspect]
     Indication: BACTERIAL INFECTION
  2. SPECTRACEF [Suspect]
     Indication: BRONCHITIS ACUTE

REACTIONS (1)
  - CLOSTRIDIAL INFECTION [None]
